FAERS Safety Report 5675215-5 (Version None)
Quarter: 2008Q1

REPORT INFORMATION
  Report Type: 
  Country: None (occurrence: None)
  Receive Date: 20080320
  Receipt Date: 20080312
  Transmission Date: 20080703
  Serious: Yes (Hospitalization)
  Sender: FDA-Public Use
  Company Number: HQWYE696223NOV05

PATIENT
  Sex: Female
  Weight: 55 kg

DRUGS (11)
  1. ADVIL [Suspect]
     Indication: PYREXIA
     Dosage: UNKNOWN
     Route: 048
     Dates: start: 20050822, end: 20050901
  2. ADVIL [Suspect]
     Indication: PHARYNGOLARYNGEAL PAIN
  3. YASMIN [Concomitant]
     Indication: ORAL CONTRACEPTION
     Dosage: UNKNOWN
     Route: 048
  4. EUPHYTOSE [Suspect]
     Indication: SLEEP DISORDER
     Dosage: UNKNOWN
     Route: 065
     Dates: start: 20050530
  5. QUESTRAN [Suspect]
     Dosage: UNKNOWN
     Route: 065
     Dates: start: 20050907
  6. QUESTRAN [Suspect]
     Dosage: UNKNOWN
     Route: 065
     Dates: start: 20050101, end: 20050921
  7. PENICILLIN [Suspect]
     Indication: PHARYNGITIS
     Dosage: UNKNOWN
     Route: 065
     Dates: start: 20050822, end: 20050826
  8. PENICILLIN [Suspect]
     Indication: CONJUNCTIVITIS
  9. ATARAX [Suspect]
     Dosage: UNKNOWN
     Route: 065
     Dates: start: 20050812, end: 20050812
  10. ATARAX [Suspect]
     Dosage: UNKNOWN
     Route: 065
     Dates: start: 20050816, end: 20050818
  11. ATARAX [Suspect]
     Dosage: UNKNOWN
     Route: 065
     Dates: start: 20050827, end: 20050828

REACTIONS (4)
  - ANXIETY [None]
  - HEPATITIS CHOLESTATIC [None]
  - LYMPHADENOPATHY [None]
  - STEVENS-JOHNSON SYNDROME [None]
